FAERS Safety Report 8448305-1 (Version None)
Quarter: 2012Q2

REPORT INFORMATION
  Report Type: 
  Country: None (occurrence: None)
  Receive Date: 20120619
  Receipt Date: 20120615
  Transmission Date: 20120825
  Serious: Yes (Hospitalization)
  Sender: FDA-Public Use
  Company Number: US-ROCHE-1071841

PATIENT
  Sex: Male

DRUGS (1)
  1. XELODA [Suspect]
     Indication: OESOPHAGEAL CARCINOMA
     Route: 048
     Dates: start: 20120507, end: 20120511

REACTIONS (4)
  - OESOPHAGEAL OBSTRUCTION [None]
  - OESOPHAGEAL NEOPLASM [None]
  - METASTASES TO LIVER [None]
  - NAUSEA [None]
